FAERS Safety Report 18358040 (Version 1)
Quarter: 2020Q4

REPORT INFORMATION
  Report Type: Report from Study
  Country: DZ (occurrence: DZ)
  Receive Date: 20201008
  Receipt Date: 20201008
  Transmission Date: 20210114
  Serious: Yes (Hospitalization, Other)
  Sender: FDA-Public Use
  Company Number: DZ-VISTAPHARM, INC.-VER202009-001662

PATIENT
  Age: 26 Year
  Sex: Male

DRUGS (1)
  1. HYDROCODONE AND ACETAMINOPHEN [Suspect]
     Active Substance: ACETAMINOPHEN\HYDROCODONE
     Indication: PRODUCT USED FOR UNKNOWN INDICATION
     Dosage: UNKNOWN

REACTIONS (8)
  - Cardio-respiratory arrest [Unknown]
  - Conjunctival haemorrhage [Unknown]
  - Coma [Unknown]
  - Anoxia [Unknown]
  - Oedema [Unknown]
  - Hepatic encephalopathy [Unknown]
  - Pyrexia [Unknown]
  - Toxicity to various agents [Unknown]
